FAERS Safety Report 7600385-9 (Version None)
Quarter: 2011Q3

REPORT INFORMATION
  Report Type: 
  Country: None (occurrence: None)
  Receive Date: 20110711
  Receipt Date: 20110628
  Transmission Date: 20111222
  Serious: Yes (Hospitalization, Other)
  Sender: FDA-Public Use
  Company Number: US-ELI_LILLY_AND_COMPANY-US201012001633

PATIENT
  Sex: Female

DRUGS (20)
  1. REMICADE [Concomitant]
  2. LISINOPRIL [Concomitant]
  3. STRESSTABS WITH ZINC [Concomitant]
  4. EFFEXOR [Concomitant]
  5. VITAMIN D [Concomitant]
  6. FORTEO [Suspect]
     Dosage: 20 UG, DAILY (1/D)
  7. FORTEO [Suspect]
     Dosage: 20 UG, QD
  8. ESTER-C [Concomitant]
     Dosage: 500 MG, UNK
  9. TYLENOL                                 /SCH/ [Concomitant]
     Indication: PAIN
     Dosage: 500 MG, PRN
  10. METAMUCIL-2 [Concomitant]
  11. FEOSOL [Concomitant]
     Indication: ANAEMIA
     Dosage: 1 DF, BID
  12. ASACOL [Concomitant]
     Indication: CROHN'S DISEASE
     Dosage: 400 MG, TID
  13. NAPROXEN (ALEVE) [Concomitant]
  14. FISH OIL [Concomitant]
  15. FORTEO [Suspect]
     Indication: OSTEOPOROSIS
     Dosage: 20 UG, DAILY (1/D)
     Dates: start: 20100601
  16. MEGACE [Concomitant]
  17. SPIRIVA [Concomitant]
     Dosage: 1 DF, QD
  18. ALTRAMET [Concomitant]
  19. PRILOSEC [Concomitant]
  20. TYLENOL PM [Concomitant]

REACTIONS (15)
  - BLOOD PRESSURE DECREASED [None]
  - DEHYDRATION [None]
  - GAIT DISTURBANCE [None]
  - ASTHENIA [None]
  - CARDIAC DISORDER [None]
  - FEELING COLD [None]
  - OEDEMA PERIPHERAL [None]
  - SEPSIS [None]
  - HERPES ZOSTER [None]
  - MALAISE [None]
  - LETHARGY [None]
  - FATIGUE [None]
  - MUSCULOSKELETAL PAIN [None]
  - WEIGHT DECREASED [None]
  - DECREASED APPETITE [None]
